FAERS Safety Report 5237611-X (Version None)
Quarter: 2007Q1

REPORT INFORMATION
  Report Type: 
  Country: None (occurrence: None)
  Receive Date: 20070213
  Receipt Date: 20070201
  Transmission Date: 20070707
  Serious: Yes (Other)
  Sender: FDA-Public Use
  Company Number: TW-PFIZER INC-2007010509

PATIENT
  Age: 17 Year
  Sex: Male

DRUGS (8)
  1. ZYRTEC [Suspect]
     Indication: INFLUENZA
     Dosage: DAILY DOSE:10MG
     Route: 048
     Dates: start: 20061228, end: 20061231
  2. OSELTAMIVIR [Suspect]
     Indication: INFLUENZA
     Dosage: DAILY DOSE:150MG
     Route: 048
     Dates: start: 20061229, end: 20070101
  3. LORATADINE [Suspect]
     Indication: INFLUENZA
     Dosage: DAILY DOSE:15MG
     Route: 048
     Dates: start: 20061228, end: 20061231
  4. AMANTADINE HCL [Suspect]
     Indication: INFLUENZA
     Dosage: DAILY DOSE:200MG
     Route: 048
     Dates: start: 20061228, end: 20061231
  5. PARACETAMOL [Concomitant]
     Dates: start: 20061228, end: 20061231
  6. PENTOXYVERINE CITRATE [Concomitant]
     Dates: start: 20061228, end: 20061231
  7. PSEUDOEPHEDRINE HCL [Concomitant]
     Dates: start: 20061228, end: 20061231
  8. IBUPROFEN [Concomitant]
     Dates: start: 20061228, end: 20061231

REACTIONS (3)
  - ABNORMAL BEHAVIOUR [None]
  - HALLUCINATION [None]
  - MENTAL DISORDER [None]
